FAERS Safety Report 6152641-1 (Version None)
Quarter: 2009Q2

REPORT INFORMATION
  Report Type: 
  Country: None (occurrence: None)
  Receive Date: 20090413
  Receipt Date: 20090406
  Transmission Date: 20091009
  Serious: Yes (Life-Threatening, Hospitalization, Other)
  Sender: FDA-Public Use
  Company Number: CH-CELGENEUS-151-21880-09031219

PATIENT
  Sex: Female

DRUGS (15)
  1. REVLIMID [Suspect]
     Route: 048
     Dates: start: 20070101, end: 20081101
  2. REVLIMID [Suspect]
     Route: 048
     Dates: start: 20090101
  3. SPIRICORT [Concomitant]
     Indication: DRUG USE FOR UNKNOWN INDICATION
     Route: 065
     Dates: end: 20090330
  4. SPIRICORT [Concomitant]
     Route: 065
     Dates: start: 20090331, end: 20090406
  5. SPIRICORT [Concomitant]
     Route: 065
     Dates: start: 20090407, end: 20090401
  6. CYCLOKAPRON [Concomitant]
     Indication: DRUG USE FOR UNKNOWN INDICATION
     Route: 065
     Dates: end: 20090320
  7. CALCIUM D3 SANDOZ [Concomitant]
     Indication: DRUG USE FOR UNKNOWN INDICATION
     Route: 065
  8. NEBILET [Concomitant]
     Indication: DRUG USE FOR UNKNOWN INDICATION
     Route: 065
  9. ELTROXIN [Concomitant]
     Indication: DRUG USE FOR UNKNOWN INDICATION
     Route: 065
  10. NEUPOGEN [Concomitant]
     Indication: DRUG USE FOR UNKNOWN INDICATION
     Route: 065
  11. SODIUM CHLORIDE [Concomitant]
     Indication: DRUG USE FOR UNKNOWN INDICATION
     Dosage: 2 ML
     Route: 065
  12. VENTOLIN [Concomitant]
     Indication: DRUG USE FOR UNKNOWN INDICATION
     Dosage: 2 DROPS
     Route: 065
  13. LORAZEPAM [Concomitant]
     Indication: DRUG USE FOR UNKNOWN INDICATION
     Route: 065
  14. SOLU-MEDROL [Concomitant]
     Indication: DRUG USE FOR UNKNOWN INDICATION
  15. ZOMETA [Concomitant]
     Indication: DRUG USE FOR UNKNOWN INDICATION
     Route: 051

REACTIONS (6)
  - MUSCULOSKELETAL PAIN [None]
  - PULMONARY ALVEOLAR HAEMORRHAGE [None]
  - SINUSITIS [None]
  - SUPRAVENTRICULAR TACHYCARDIA [None]
  - TENDON DISORDER [None]
  - TENOSYNOVITIS [None]
